FAERS Safety Report 11585053 (Version 1)
Quarter: 2015Q4

REPORT INFORMATION
  Report Type: Spontaneous
  Country: CN (occurrence: CN)
  Receive Date: 20151001
  Receipt Date: 20151001
  Transmission Date: 20160304
  Serious: Yes (Other)
  Sender: FDA-Public Use
  Company Number: CN-CIPLA LTD.-2015CN07604

PATIENT

DRUGS (11)
  1. FOLIC ACID. [Suspect]
     Active Substance: FOLIC ACID
     Indication: ANAEMIA
     Dosage: 0.4 MG, QD
     Route: 065
  2. DEXAMETHASONE. [Suspect]
     Active Substance: DEXAMETHASONE
     Indication: MATERNAL THERAPY TO ENHANCE FOETAL LUNG MATURITY
     Dosage: 6 MG, BID
     Route: 030
  3. AMLODIPINE [Suspect]
     Active Substance: AMLODIPINE BESYLATE
     Indication: BLOOD PRESSURE INADEQUATELY CONTROLLED
     Dosage: 5 MG, QD
     Route: 065
     Dates: start: 2006
  4. ISOSORBIDEDINITRATE [Suspect]
     Active Substance: ISOSORBIDE DINITRATE
     Indication: BLOOD PRESSURE INADEQUATELY CONTROLLED
     Dosage: 0.296 G, QD
     Route: 065
  5. ERYTHROPOIETIN [Suspect]
     Active Substance: ERYTHROPOIETIN
     Indication: ANAEMIA
     Dosage: 300 IU, TWICE A WEEK
     Route: 065
  6. L-CARNITINE [Suspect]
     Active Substance: LEVOCARNITINE
     Indication: NUTRITIONAL SUPPLEMENTATION
     Dosage: 10 %, QD
     Route: 065
  7. LOW-MOLECULAR WEIGHT-HEPARIN [Suspect]
     Active Substance: UNSPECIFIED INGREDIENT
     Route: 065
  8. COMPOUND AMINO ACID [Suspect]
     Active Substance: AMINO ACIDS
     Indication: NUTRITIONAL SUPPLEMENTATION
     Dosage: 250 ML, QD
     Route: 042
  9. FRUCTOSEDIPHOSPHATE SODIUM [Suspect]
     Active Substance: FOSFRUCTOSE
     Dosage: 10 G, QD
     Route: 065
  10. VITOMIN Z [Suspect]
     Active Substance: MINERALS\VITAMINS
     Route: 065
  11. POLYFEROSE [Suspect]
     Active Substance: IRON
     Indication: ANAEMIA
     Dosage: 150 MG, QD
     Route: 065

REACTIONS (17)
  - Single umbilical artery [None]
  - Productive cough [None]
  - Hyperkalaemia [None]
  - Placental disorder [Unknown]
  - Polyhydramnios [None]
  - Hypertension [None]
  - Blood sodium decreased [None]
  - Uterine contractions during pregnancy [None]
  - Exposure during pregnancy [Recovered/Resolved]
  - Pregnancy [None]
  - Blood albumin decreased [None]
  - Blood calcium decreased [None]
  - Caesarean section [None]
  - Anaemia [Unknown]
  - Haemodialysis [None]
  - Blood chloride increased [None]
  - Chest discomfort [None]

NARRATIVE: CASE EVENT DATE: 20120207
